FAERS Safety Report 23171094 (Version 1)
Quarter: 2023Q4

REPORT INFORMATION
  Report Type: Spontaneous
  Country: US (occurrence: None)
  Receive Date: 20231110
  Receipt Date: 20231110
  Transmission Date: 20240110
  Serious: Yes (Life-Threatening, Hospitalization, Other)
  Sender: FDA-Public Use
  Company Number: None

PATIENT
  Age: 72 Year
  Sex: Female

DRUGS (1)
  1. MOUNJARO [Suspect]
     Active Substance: TIRZEPATIDE
     Indication: Diabetes mellitus
     Dosage: OTHER FREQUENCY : INJECTION ONCE WEE;?
     Route: 058
     Dates: end: 20231013

REACTIONS (7)
  - Headache [None]
  - Sinus headache [None]
  - Aphasia [None]
  - Incoherent [None]
  - Confusional state [None]
  - Amnesia [None]
  - Disorientation [None]

NARRATIVE: CASE EVENT DATE: 20231013
